FAERS Safety Report 9197039 (Version 1)
Quarter: 2013Q1

REPORT INFORMATION
  Report Type: Spontaneous
  Country: US (occurrence: US)
  Receive Date: 20130328
  Receipt Date: 20130328
  Transmission Date: 20140127
  Serious: Yes (Other)
  Sender: FDA-Public Use
  Company Number: US-ROCHE-1205900

PATIENT
  Age: 30 Year
  Sex: Female
  Weight: 68.55 kg

DRUGS (1)
  1. XOLAIR [Suspect]
     Indication: ASTHMA
     Route: 058
     Dates: start: 201301

REACTIONS (1)
  - Local swelling [Not Recovered/Not Resolved]
